FAERS Safety Report 16735023 (Version 4)
Quarter: 2019Q4

REPORT INFORMATION
  Report Type: Report from Study
  Country: US (occurrence: US)
  Receive Date: 20190823
  Receipt Date: 20191129
  Transmission Date: 20200122
  Serious: Yes (Life-Threatening, Hospitalization)
  Sender: FDA-Public Use
  Company Number: US-ROCHE-2378672

PATIENT
  Age: 41 Year
  Sex: Female
  Weight: 50.8 kg

DRUGS (3)
  1. NORCO [Concomitant]
     Active Substance: ACETAMINOPHEN\HYDROCODONE BITARTRATE
     Indication: ABDOMINAL PAIN
     Route: 065
     Dates: start: 20190621
  2. COBIMETINIB. [Suspect]
     Active Substance: COBIMETINIB
     Indication: PANCREATIC CARCINOMA
     Dosage: MOST RECENT DOSE OF COBIMETINIB PRIOR TO EVENT ONSET WAS ON 31/JUL/2019
     Route: 048
     Dates: start: 20190722, end: 20190801
  3. COLACE [Concomitant]
     Active Substance: DOCUSATE SODIUM
     Indication: CONSTIPATION
     Route: 065
     Dates: start: 20190118

REACTIONS (1)
  - Large intestinal obstruction [Recovered/Resolved with Sequelae]

NARRATIVE: CASE EVENT DATE: 20190731
